FAERS Safety Report 10149264 (Version 2)
Quarter: 2014Q2

REPORT INFORMATION
  Report Type: Spontaneous
  Country: IT (occurrence: None)
  Receive Date: 20140430
  Receipt Date: 20140528
  Transmission Date: 20141212
  Serious: Yes (Death, Other)
  Sender: FDA-Public Use
  Company Number: 2014MPI00410

PATIENT
  Age: 19 Year
  Sex: Female

DRUGS (1)
  1. ADCETRIS [Suspect]
     Indication: NON-HODGKIN^S LYMPHOMA
     Route: 042

REACTIONS (1)
  - Off label use [None]
